FAERS Safety Report 24088746 (Version 5)
Quarter: 2024Q4

REPORT INFORMATION
  Report Type: Report from Study
  Country: JP (occurrence: JP)
  Receive Date: 20240715
  Receipt Date: 20241010
  Transmission Date: 20250114
  Serious: Yes (Hospitalization)
  Sender: ROCHE
  Company Number: JP-CHUGAI-2024022902AA

PATIENT
  Age: 15 Year
  Sex: Male
  Weight: 20 kg

DRUGS (1)
  1. EVRYSDI [Suspect]
     Active Substance: RISDIPLAM
     Indication: Spinal muscular atrophy
     Dosage: UNK
     Route: 050
     Dates: start: 20211203

REACTIONS (1)
  - Pneumothorax [Recovered/Resolved]
